FAERS Safety Report 21314520 (Version 1)
Quarter: 2022Q3

REPORT INFORMATION
  Report Type: Spontaneous
  Country: US (occurrence: US)
  Receive Date: 20220909
  Receipt Date: 20220909
  Transmission Date: 20221026
  Serious: No
  Sender: FDA-Public Use
  Company Number: US-PFIZER INC-PV202200058851

PATIENT
  Age: 66 Year
  Sex: Female

DRUGS (7)
  1. IBRANCE [Suspect]
     Active Substance: PALBOCICLIB
     Indication: Breast cancer female
     Dosage: 75 MG, 1X/DAY(TAKE 1 TABLET (75 MG) BY MOUTH ONCE DAILY FOR 21 DAYS, THEN OFF FOR 14 DAYS)
     Route: 048
     Dates: start: 20200430
  2. DILAUDID [Concomitant]
     Active Substance: HYDROMORPHONE HYDROCHLORIDE
     Dosage: UNK
  3. FASLODEX [Concomitant]
     Active Substance: FULVESTRANT
     Dosage: UNK
  4. FOLIC ACID [Concomitant]
     Active Substance: FOLIC ACID
     Dosage: UNK
  5. LOPRESSOR [Concomitant]
     Active Substance: METOPROLOL TARTRATE
     Dosage: UNK
  6. METHADONE [Concomitant]
     Active Substance: METHADONE HYDROCHLORIDE
     Dosage: 5 UNK
  7. SULFASALAZINE [Concomitant]
     Active Substance: SULFASALAZINE
     Dosage: UNK

REACTIONS (4)
  - Fatigue [Unknown]
  - Alopecia [Unknown]
  - Nausea [Unknown]
  - Off label use [Unknown]

NARRATIVE: CASE EVENT DATE: 20200430
